FAERS Safety Report 11900923 (Version 1)
Quarter: 2016Q1

REPORT INFORMATION
  Report Type: Spontaneous
  Country: GB (occurrence: GB)
  Receive Date: 20160108
  Receipt Date: 20160108
  Transmission Date: 20160526
  Serious: Yes (Other)
  Sender: FDA-Public Use
  Company Number: GB-TEVA-622790ACC

PATIENT
  Age: 81 Year
  Sex: Male
  Weight: 106.3 kg

DRUGS (4)
  1. NAPROXEN. [Concomitant]
     Active Substance: NAPROXEN
  2. PREDNISOLONE. [Suspect]
     Active Substance: PREDNISOLONE
     Indication: PROSTATE CANCER
     Dosage: 5 MILLIGRAM DAILY;
     Route: 048
     Dates: start: 20130917
  3. ABIRATERONE [Suspect]
     Active Substance: ABIRATERONE
     Indication: PROSTATE CANCER
     Dosage: 1000 MILLIGRAM DAILY;
     Route: 048
     Dates: start: 20130917, end: 20151221
  4. AMLODIPINE [Suspect]
     Active Substance: AMLODIPINE BESYLATE
     Indication: PULMONARY ARTERIAL HYPERTENSION
     Dosage: 5 MILLIGRAM DAILY;
     Route: 048
     Dates: start: 20151202

REACTIONS (1)
  - Acute biphenotypic leukaemia [Not Recovered/Not Resolved]

NARRATIVE: CASE EVENT DATE: 20151218
